FAERS Safety Report 7597716-5 (Version None)
Quarter: 2011Q3

REPORT INFORMATION
  Report Type: 
  Country: None (occurrence: None)
  Receive Date: 20110708
  Receipt Date: 20110614
  Transmission Date: 20111222
  Serious: Yes (Hospitalization)
  Sender: FDA-Public Use
  Company Number: US-GLAXOSMITHKLINE-A0935226A

PATIENT
  Sex: Male

DRUGS (1)
  1. AVANDIA [Suspect]
     Indication: PRODUCT USED FOR UNKNOWN INDICATION
     Dosage: 2MG UNKNOWN
     Route: 065
     Dates: start: 20051216, end: 20081211

REACTIONS (4)
  - PERIPHERAL VASCULAR DISORDER [None]
  - CORONARY ARTERY DISEASE [None]
  - ARTERIOSCLEROSIS [None]
  - ATRIAL FIBRILLATION [None]
